FAERS Safety Report 7407850-8 (Version None)
Quarter: 2011Q1

REPORT INFORMATION
  Report Type: 
  Country: None (occurrence: None)
  Receive Date: 20110331
  Receipt Date: 20110321
  Transmission Date: 20110831
  Serious: Yes (Hospitalization)
  Sender: FDA-Public Use
  Company Number: 2010004607

PATIENT
  Age: 59 Year
  Sex: Female
  Weight: 54 kg

DRUGS (9)
  1. DILAUDID [Concomitant]
  2. NORVASC [Concomitant]
  3. ERLOTINIB (ERLOTINIB) (TABLET) (ERLOTINIB) [Suspect]
     Indication: NON-SMALL CELL LUNG CANCER
     Dosage: (100 MG,QD),ORAL
     Route: 048
     Dates: start: 20100630
  4. PERTUZUMAB [Suspect]
     Indication: NON-SMALL CELL LUNG CANCER
     Dosage: (420 UNKNOWN Q21 DAYS),INTRAVENOUS
     Route: 042
     Dates: start: 20100630
  5. NEURONTIN [Concomitant]
  6. POTASSIUM CHLORIDE [Concomitant]
  7. CIPROFLOXACIN [Concomitant]
  8. AMITRIPTYLINE (AMITRIPTYLINE) [Concomitant]
  9. FRAGMIN [Concomitant]

REACTIONS (6)
  - NAUSEA [None]
  - RESPIRATORY FAILURE [None]
  - RASH [None]
  - DIARRHOEA [None]
  - PNEUMATOSIS INTESTINALIS [None]
  - PAIN IN EXTREMITY [None]
